FAERS Safety Report 5277362-9 (Version None)
Quarter: 2007Q1

REPORT INFORMATION
  Report Type: 
  Country: None (occurrence: None)
  Receive Date: 20070327
  Receipt Date: 20070315
  Transmission Date: 20070707
  Serious: Yes (Other)
  Sender: FDA-Public Use
  Company Number: US-JNJFOC-20070303808

PATIENT
  Sex: Female
  Weight: 60.78 kg

DRUGS (11)
  1. INFLIXIMAB [Suspect]
     Indication: RHEUMATOID ARTHRITIS
     Route: 042
  2. METHOTREXATE [Concomitant]
  3. FOSAMAX [Concomitant]
  4. FOLIC ACID [Concomitant]
  5. WELLBUTRIN [Concomitant]
  6. LEXAPRO [Concomitant]
  7. CALCIUM [Concomitant]
  8. OMEGA 3 [Concomitant]
  9. SELENIUM SULFIDE [Concomitant]
  10. MULTI-VITAMINS [Concomitant]
  11. TYLEN0L [Concomitant]

REACTIONS (1)
  - BREAST CANCER [None]
